FAERS Safety Report 8382598-4 (Version None)
Quarter: 2012Q2

REPORT INFORMATION
  Report Type: 
  Country: None (occurrence: None)
  Receive Date: 20120524
  Receipt Date: 20120514
  Transmission Date: 20120825
  Serious: Yes (Other)
  Sender: FDA-Public Use
  Company Number: US-JNJFOC-20120306260

PATIENT
  Age: 67 Year
  Sex: Male

DRUGS (4)
  1. COUMADIN [Concomitant]
  2. XARELTO [Suspect]
     Indication: ATRIAL FIBRILLATION
     Route: 048
  3. SYNTHROID [Concomitant]
  4. ENALAPRIL MALEATE [Concomitant]

REACTIONS (1)
  - CEREBROVASCULAR ACCIDENT [None]
